FAERS Safety Report 23277420 (Version 1)
Quarter: 2023Q4

REPORT INFORMATION
  Report Type: Spontaneous
  Country: US (occurrence: None)
  Receive Date: 20231207
  Receipt Date: 20231207
  Transmission Date: 20240109
  Serious: No
  Sender: FDA-Public Use
  Company Number: None

PATIENT
  Age: 70 Year
  Sex: Male
  Weight: 76.95 kg

DRUGS (2)
  1. BOTOX [Suspect]
     Active Substance: ONABOTULINUMTOXINA
     Indication: Dystonia
     Dosage: OTHER FREQUENCY : QUARTERLY;?
     Route: 030
     Dates: start: 20230830
  2. BOTOX [Concomitant]
     Active Substance: ONABOTULINUMTOXINA
     Dates: start: 20230830, end: 20231207

REACTIONS (2)
  - Exostosis [None]
  - Injection site swelling [None]

NARRATIVE: CASE EVENT DATE: 20231207
